FAERS Safety Report 8297595-7 (Version None)
Quarter: 2012Q2

REPORT INFORMATION
  Report Type: 
  Country: None (occurrence: None)
  Receive Date: 20120419
  Receipt Date: 20120417
  Transmission Date: 20120825
  Serious: Yes (Hospitalization)
  Sender: FDA-Public Use
  Company Number: PHHY2011NL82093

PATIENT
  Sex: Male

DRUGS (14)
  1. ZOMETA [Suspect]
     Dosage: 4 MG/5 ML 1X PER 28 DAYS
     Route: 042
     Dates: start: 20111011
  2. ZOMETA [Suspect]
     Dosage: 4 MG/100 ML 1X PER 28 DAYS
     Route: 042
     Dates: start: 20120321
  3. TAXOTERE [Concomitant]
     Route: 042
  4. CALCIUM CARBONATE [Concomitant]
  5. ZOMETA [Suspect]
     Dosage: 4 MG/5 ML 1X PER 28 DAYS
     Route: 042
     Dates: start: 20110914
  6. ZOMETA [Suspect]
     Dosage: 4 MG/5 ML 1X PER 28 DAYS
     Route: 042
     Dates: start: 20111206
  7. CRESTOR [Concomitant]
  8. ZOMETA [Suspect]
     Dosage: 4 MG/5 ML 1X PER 28 DAYS
     Route: 042
     Dates: start: 20110818
  9. PREDNISOLONE [Concomitant]
     Route: 048
  10. SELOKEEN [Concomitant]
  11. TAMSULOSIN HCL [Concomitant]
  12. AMLODIPINE [Concomitant]
  13. ZOMETA [Suspect]
     Indication: PROSTATE CANCER METASTATIC
     Dosage: 4 MG/5 ML 1X PER 28 DAYS
     Dates: start: 20110721
  14. IMMUNOSUPPRESSANTS [Concomitant]

REACTIONS (8)
  - PYREXIA [None]
  - CYSTITIS NONINFECTIVE [None]
  - MALAISE [None]
  - PYELONEPHRITIS [None]
  - URINARY TRACT INFECTION [None]
  - INFLAMMATION [None]
  - CHILLS [None]
  - RENAL IMPAIRMENT [None]
